FAERS Safety Report 6885739-0 (Version None)
Quarter: 2010Q3

REPORT INFORMATION
  Report Type: 
  Country: None (occurrence: None)
  Receive Date: 20100729
  Receipt Date: 20081014
  Transmission Date: 20110219
  Serious: No
  Sender: FDA-Public Use
  Company Number: US-PFIZER INC-2008070579

PATIENT
  Sex: Female
  Weight: 79.545 kg

DRUGS (4)
  1. CELEBREX [Suspect]
     Indication: BACK DISORDER
     Route: 048
     Dates: start: 20080801, end: 20080801
  2. GLYBURIDE [Concomitant]
     Indication: DIABETES MELLITUS
  3. METFORMIN HCL [Concomitant]
     Indication: DIABETES MELLITUS
  4. INSULIN [Concomitant]
     Indication: DIABETES MELLITUS

REACTIONS (2)
  - DIARRHOEA [None]
  - MALAISE [None]
